FAERS Safety Report 22394705 (Version 1)
Quarter: 2023Q2

REPORT INFORMATION
  Report Type: Spontaneous
  Country: US (occurrence: US)
  Receive Date: 20230601
  Receipt Date: 20230601
  Transmission Date: 20230722
  Serious: Yes (Other)
  Sender: FDA-Public Use
  Company Number: US-FreseniusKabi-FK202307760

PATIENT
  Age: 31 Year
  Sex: Female

DRUGS (3)
  1. VANCOMYCIN [Suspect]
     Active Substance: VANCOMYCIN
     Indication: Product used for unknown indication
     Route: 042
  2. VANCOMYCIN [Suspect]
     Active Substance: VANCOMYCIN
     Dosage: LEFT INTRAVITREAL VANCOMYCIN INJECTION
  3. DAPTOMYCIN [Concomitant]
     Active Substance: DAPTOMYCIN
     Indication: Product used for unknown indication

REACTIONS (2)
  - Acute kidney injury [Unknown]
  - Drug eruption [Unknown]
